FAERS Safety Report 10162335 (Version 4)
Quarter: 2014Q3

REPORT INFORMATION
  Report Type: Spontaneous
  Country: JP (occurrence: JP)
  Receive Date: 20140509
  Receipt Date: 20140723
  Transmission Date: 20150326
  Serious: Yes (Life-Threatening, Hospitalization, Other)
  Sender: FDA-Public Use
  Company Number: JP-ASTELLAS-2014JP002240

PATIENT
  Age: 1 Year
  Sex: Male
  Weight: 10 kg

DRUGS (70)
  1. PROGRAF [Suspect]
     Active Substance: TACROLIMUS\TACROLIMUS ANHYDROUS
     Indication: PROPHYLAXIS AGAINST GRAFT VERSUS HOST DISEASE
     Dosage: 0.3 MG, CONTINUOUS
     Route: 041
     Dates: start: 20101209, end: 20101217
  2. CELLCEPT [Suspect]
     Active Substance: MYCOPHENOLATE MOFETIL\MYCOPHENOLATE MOFETIL HYDROCHLORIDE
     Route: 048
     Dates: start: 20110117, end: 20110412
  3. GLUCOSE [Concomitant]
     Active Substance: DEXTROSE
     Indication: LEUKAEMIA MONOCYTIC
     Route: 041
  4. GLUCOSE [Concomitant]
     Active Substance: DEXTROSE
     Indication: PEPTIC ULCER
     Route: 041
     Dates: start: 20101229
  5. CEFAZOLIN SODIUM. [Concomitant]
     Active Substance: CEFAZOLIN SODIUM
     Indication: INFECTION
     Dosage: 0.5 G, TWICE DAILY
     Route: 042
     Dates: start: 20101214, end: 20101216
  6. SOLITA-T2 [Concomitant]
     Indication: PEPTIC ULCER
  7. BUSULFEX [Concomitant]
     Active Substance: BUSULFAN
     Indication: LEUKAEMIA MONOCYTIC
     Route: 042
     Dates: start: 20101201, end: 20101205
  8. LASIX [Concomitant]
     Active Substance: FUROSEMIDE
     Indication: PULMONARY OEDEMA
     Dosage: 0.5 ML, TWICE DAILY
     Route: 042
     Dates: start: 20101203, end: 20101224
  9. SULBACILLIN [Concomitant]
     Active Substance: AMPICILLIN SODIUM\SULBACTAM SODIUM
     Indication: INFECTION
     Route: 042
     Dates: start: 20101204, end: 20101204
  10. PENTCILLIN [Concomitant]
     Active Substance: PIPERACILLIN SODIUM
     Indication: PEPTIC ULCER
  11. ACICLOVIR [Concomitant]
     Active Substance: ACYCLOVIR
     Indication: INFECTION
     Route: 042
     Dates: start: 20101216
  12. VANCOMYCIN HYDROCHLORIDE. [Concomitant]
     Active Substance: VANCOMYCIN HYDROCHLORIDE
     Indication: INFECTION
     Route: 042
     Dates: start: 20101218, end: 20101222
  13. FUNGUARD [Concomitant]
     Active Substance: MICAFUNGIN SODIUM
     Indication: LEUKAEMIA MONOCYTIC
     Route: 042
     Dates: start: 20101219, end: 20101226
  14. POLYMYXIN B SULFATE [Concomitant]
     Active Substance: POLYMYXIN B SULFATE
     Indication: INFECTION
     Dosage: 0.5 DF, TWICE DAILY
     Route: 048
     Dates: end: 20110101
  15. BACCIDAL                           /00668101/ [Concomitant]
     Indication: LEUKAEMIA MONOCYTIC
     Route: 048
     Dates: end: 20110101
  16. HICALIQ [Concomitant]
     Indication: LEUKAEMIA MONOCYTIC
     Route: 042
     Dates: start: 20101229
  17. MINERALIN                          /07689401/ [Concomitant]
     Indication: LEUKAEMIA MONOCYTIC
     Route: 042
     Dates: start: 20101230, end: 20101230
  18. METHOTREXATE [Concomitant]
     Active Substance: METHOTREXATE
     Route: 042
     Dates: start: 20101213, end: 20101213
  19. CEFEPIME [Concomitant]
     Active Substance: CEFEPIME\CEFEPIME HYDROCHLORIDE
     Dosage: 0.5 G, TWICE DAILY
     Route: 042
     Dates: start: 20101216, end: 20101218
  20. FAMOTIDINE. [Concomitant]
     Active Substance: FAMOTIDINE
     Indication: PEPTIC ULCER
     Route: 042
     Dates: start: 20101216, end: 20101220
  21. SOLDEM 3AG [Concomitant]
     Indication: LEUKAEMIA MONOCYTIC
     Route: 041
     Dates: end: 20101229
  22. VFEND [Concomitant]
     Active Substance: VORICONAZOLE
     Indication: LEUKAEMIA MONOCYTIC
     Route: 042
     Dates: start: 20101226
  23. AMIKACIN [Concomitant]
     Active Substance: AMIKACIN
     Indication: INFECTION
     Route: 042
     Dates: start: 20101228, end: 20110101
  24. MINERALIN                          /07689401/ [Concomitant]
     Indication: PEPTIC ULCER
  25. PROGRAF [Suspect]
     Active Substance: TACROLIMUS\TACROLIMUS ANHYDROUS
     Indication: LEUKAEMIA MONOCYTIC
     Dosage: 0.3 MG, CONTINUOUS
     Route: 041
     Dates: start: 20110103, end: 20110117
  26. METHOTREXATE [Concomitant]
     Active Substance: METHOTREXATE
     Indication: PROPHYLAXIS AGAINST GRAFT VERSUS HOST DISEASE
     Route: 042
     Dates: start: 20101211, end: 20101211
  27. ALKERAN [Concomitant]
     Active Substance: MELPHALAN
     Indication: LEUKAEMIA MONOCYTIC
     Route: 042
     Dates: start: 20101205, end: 20101206
  28. CEFEPIME [Concomitant]
     Active Substance: CEFEPIME\CEFEPIME HYDROCHLORIDE
     Route: 042
     Dates: start: 20101222, end: 20101226
  29. SAXIZON [Concomitant]
     Active Substance: HYDROCORTISONE SODIUM SUCCINATE
     Indication: LEUKAEMIA MONOCYTIC
     Route: 042
     Dates: start: 20101204, end: 20101204
  30. MAGNESIUM SULFATE [Concomitant]
     Active Substance: MAGNESIUM SULFATE
     Indication: LEUKAEMIA MONOCYTIC
     Route: 042
     Dates: start: 20101218, end: 20101219
  31. VENETLIN [Concomitant]
     Active Substance: ALBUTEROL SULFATE
     Indication: INFECTION
     Dosage: 0.1 ML, ONCE DAILY
     Route: 055
     Dates: start: 20110103, end: 20110103
  32. GRANISETRON [Concomitant]
     Active Substance: GRANISETRON
     Indication: LEUKAEMIA MONOCYTIC
     Route: 042
     Dates: start: 20101201, end: 20101208
  33. DENOSINE                           /00784201/ [Concomitant]
     Active Substance: GANCICLOVIR
     Indication: LEUKAEMIA MONOCYTIC
     Route: 042
     Dates: start: 20101201, end: 20101207
  34. PENTCILLIN [Concomitant]
     Active Substance: PIPERACILLIN SODIUM
     Indication: LEUKAEMIA MONOCYTIC
     Dosage: 0.5 G, TWICE DAILY
     Route: 042
     Dates: start: 20110101
  35. MUSCULAX [Concomitant]
     Active Substance: VECURONIUM BROMIDE
     Indication: SEDATION
     Route: 041
     Dates: start: 20101216, end: 20101220
  36. GRAN [Concomitant]
     Active Substance: FILGRASTIM
     Indication: BONE MARROW FAILURE
     Route: 042
     Dates: start: 20101219
  37. URSO                               /00465701/ [Concomitant]
     Indication: PEPTIC ULCER
  38. REMODULIN [Concomitant]
     Active Substance: TREPROSTINIL
     Indication: VENOOCCLUSIVE LIVER DISEASE
     Route: 042
     Dates: start: 20101228
  39. SODIUM CHLORIDE. [Concomitant]
     Active Substance: SODIUM CHLORIDE
     Indication: LEUKAEMIA MONOCYTIC
     Route: 042
     Dates: start: 20101229
  40. M.V.I.                             /00326301/ [Concomitant]
     Indication: PEPTIC ULCER
  41. CELLCEPT [Suspect]
     Active Substance: MYCOPHENOLATE MOFETIL\MYCOPHENOLATE MOFETIL HYDROCHLORIDE
     Indication: LEUKAEMIA MONOCYTIC
     Route: 048
     Dates: start: 20101217, end: 20110103
  42. FLUDARA [Concomitant]
     Active Substance: FLUDARABINE PHOSPHATE
     Indication: LEUKAEMIA MONOCYTIC
     Route: 042
     Dates: start: 20101205, end: 20101208
  43. CEFEPIME [Concomitant]
     Active Substance: CEFEPIME\CEFEPIME HYDROCHLORIDE
     Indication: INFECTION
     Route: 042
     Dates: start: 20101204, end: 20101208
  44. SOLDACTONE [Concomitant]
     Active Substance: CANRENOATE POTASSIUM
     Indication: PULMONARY OEDEMA
     Route: 042
     Dates: start: 20101206, end: 20101216
  45. MIDAZOLAM [Concomitant]
     Active Substance: MIDAZOLAM\MIDAZOLAM HYDROCHLORIDE
     Indication: SEDATION
     Dosage: 0.4 MG, CONTINUOUS
     Route: 041
     Dates: start: 20101216, end: 20101227
  46. VICCLOX                            /00587301/ [Concomitant]
     Active Substance: ACYCLOVIR SODIUM
     Indication: INFECTION
     Route: 048
     Dates: end: 20101213
  47. MORPHINE HYDROCHLORIDE TRIHYDRATE [Concomitant]
     Indication: LEUKAEMIA MONOCYTIC
     Route: 041
     Dates: start: 20101212, end: 20101227
  48. SEISHOKU [Concomitant]
     Active Substance: SODIUM CHLORIDE
     Indication: INFECTION
     Route: 041
     Dates: start: 20101212, end: 20101227
  49. MINOCYCLINE                        /00232402/ [Concomitant]
     Indication: INFECTION
     Route: 042
     Dates: start: 20101215, end: 20101218
  50. BENAMBAX [Concomitant]
     Active Substance: PENTAMIDINE
     Indication: INFECTION
     Route: 055
     Dates: start: 20110103, end: 20110103
  51. HICALIQ [Concomitant]
     Indication: PEPTIC ULCER
  52. SODIUM CHLORIDE. [Concomitant]
     Active Substance: SODIUM CHLORIDE
     Indication: PEPTIC ULCER
  53. KAYTWO N [Concomitant]
     Active Substance: UNSPECIFIED INGREDIENT
     Indication: PEPTIC ULCER
  54. SOLITA-T2 [Concomitant]
     Indication: LEUKAEMIA MONOCYTIC
     Route: 042
     Dates: start: 20101231
  55. ELEMENMIC [Concomitant]
     Indication: PEPTIC ULCER
  56. METHOTREXATE [Concomitant]
     Active Substance: METHOTREXATE
     Route: 042
     Dates: start: 20101216, end: 20101216
  57. ATARAX [Concomitant]
     Active Substance: HYDROXYZINE\HYDROXYZINE HYDROCHLORIDE
     Indication: LEUKAEMIA MONOCYTIC
     Dosage: 0.4 ML, ONCE DAILY
     Route: 042
     Dates: start: 20101204, end: 20101204
  58. PENTCILLIN [Concomitant]
     Active Substance: PIPERACILLIN SODIUM
     Indication: INFECTION
     Dosage: 0.5 G, TWICE DAILY
     Route: 042
     Dates: start: 20101209, end: 20101214
  59. MUSCULAX [Concomitant]
     Active Substance: VECURONIUM BROMIDE
     Route: 041
     Dates: start: 20101219, end: 20101224
  60. ANTHROBIN P [Concomitant]
     Indication: LEUKAEMIA MONOCYTIC
     Route: 042
     Dates: start: 20101220
  61. MINOMYCIN [Concomitant]
     Active Substance: MINOCYCLINE HYDROCHLORIDE
     Indication: INFECTION
     Route: 042
     Dates: start: 20101222, end: 20101228
  62. FLUCONAZOLE. [Concomitant]
     Active Substance: FLUCONAZOLE
     Indication: INFECTION
     Route: 048
     Dates: end: 20101213
  63. URSO                               /00465701/ [Concomitant]
     Indication: LEUKAEMIA MONOCYTIC
     Dosage: UNK UNK, TWICE DAILY
     Route: 048
  64. HEPARIN SODIUM. [Concomitant]
     Active Substance: HEPARIN SODIUM
     Indication: LEUKAEMIA MONOCYTIC
     Route: 041
  65. VICCLOX                            /00587301/ [Concomitant]
     Active Substance: ACYCLOVIR SODIUM
     Indication: INFECTION
     Route: 042
     Dates: start: 20101213, end: 20101216
  66. FLUCONAZOLE. [Concomitant]
     Active Substance: FLUCONAZOLE
     Indication: INFECTION
     Dates: start: 20101213, end: 20101217
  67. MEROPEN                            /01250501/ [Concomitant]
     Active Substance: MEROPENEM
     Indication: INFECTION
     Dosage: 0.4 G, THRICE DAILY
     Route: 042
     Dates: start: 20101226, end: 20110101
  68. M.V.I.                             /00326301/ [Concomitant]
     Indication: LEUKAEMIA MONOCYTIC
     Route: 042
     Dates: start: 20101229
  69. KAYTWO N [Concomitant]
     Active Substance: UNSPECIFIED INGREDIENT
     Indication: LEUKAEMIA MONOCYTIC
     Route: 042
     Dates: start: 20101230, end: 20101230
  70. ELEMENMIC [Concomitant]
     Indication: LEUKAEMIA MONOCYTIC
     Route: 042
     Dates: start: 20121231

REACTIONS (4)
  - Peptic ulcer haemorrhage [Recovering/Resolving]
  - Renal impairment [Recovered/Resolved]
  - Pulmonary oedema [Recovering/Resolving]
  - Venoocclusive liver disease [Recovered/Resolved]

NARRATIVE: CASE EVENT DATE: 20101213
